APPROVED DRUG PRODUCT: SILODOSIN
Active Ingredient: SILODOSIN
Strength: 4MG
Dosage Form/Route: CAPSULE;ORAL
Application: A204726 | Product #001 | TE Code: AB
Applicant: CHARTWELL RX SCIENCES LLC
Approved: Mar 31, 2017 | RLD: No | RS: No | Type: RX